FAERS Safety Report 18901307 (Version 1)
Quarter: 2021Q1

REPORT INFORMATION
  Report Type: Spontaneous
  Country: US (occurrence: US)
  Receive Date: 20210216
  Receipt Date: 20210216
  Transmission Date: 20210420
  Serious: Yes (Other)
  Sender: FDA-Public Use
  Company Number: US-PFIZER INC-2021144332

PATIENT
  Age: 70 Year
  Sex: Male

DRUGS (1)
  1. VYNDAMAX [Suspect]
     Active Substance: TAFAMIDIS
     Indication: CARDIAC AMYLOIDOSIS
     Dosage: 61 MG

REACTIONS (10)
  - Ventricular extrasystoles [Unknown]
  - Syncope [Unknown]
  - Dyspnoea [Unknown]
  - Atrial fibrillation [Unknown]
  - Cardiac failure acute [Unknown]
  - Lymphadenopathy mediastinal [Unknown]
  - Presyncope [Unknown]
  - Atrial flutter [Unknown]
  - Essential hypertension [Unknown]
  - Pulmonary arterial hypertension [Unknown]
